FAERS Safety Report 13581840 (Version 1)
Quarter: 2017Q2

REPORT INFORMATION
  Report Type: Spontaneous
  Country: US (occurrence: US)
  Receive Date: 20170525
  Receipt Date: 20170525
  Transmission Date: 20170830
  Serious: Yes (Other)
  Sender: FDA-Public Use
  Company Number: US-GLAXOSMITHKLINE-US2017074920

PATIENT
  Age: 73 Year
  Sex: Female

DRUGS (1)
  1. EXCEDRIN EXTRA STRENGTH [Suspect]
     Active Substance: ACETAMINOPHEN\ASPIRIN\CAFFEINE
     Indication: MIGRAINE
     Dosage: ONCE A DAY FOR APPROXIMATELY 6 DAYS IN A ROW
     Dates: start: 201705

REACTIONS (5)
  - Oesophageal irritation [Recovered/Resolved]
  - Seizure [Unknown]
  - Product use in unapproved indication [Unknown]
  - Dyspepsia [Recovered/Resolved]
  - Oesophageal discomfort [Recovered/Resolved]
